FAERS Safety Report 4733581-9 (Version None)
Quarter: 2005Q3

REPORT INFORMATION
  Report Type: 
  Country: None (occurrence: None)
  Receive Date: 20050729
  Receipt Date: 20050720
  Transmission Date: 20060218
  Serious: Yes (Hospitalization)
  Sender: FDA-Public Use
  Company Number: 2005-07-1463

PATIENT
  Sex: Female

DRUGS (1)
  1. INTRON A [Suspect]
     Indication: HEPATITIS C
     Dosage: 3-6 INTRAMUSCULAR
     Route: 030
     Dates: start: 20040906, end: 20050401

REACTIONS (1)
  - CEREBRAL HAEMORRHAGE [None]
